FAERS Safety Report 15704696 (Version 10)
Quarter: 2022Q4

REPORT INFORMATION
  Report Type: Report from Study
  Country: DE (occurrence: DE)
  Receive Date: 20181210
  Receipt Date: 20221021
  Transmission Date: 20230113
  Serious: Yes (Hospitalization)
  Sender: FDA-Public Use
  Company Number: PHHO2018DE012848

PATIENT
  Age: 71 Year
  Sex: Male
  Weight: 81 kg

DRUGS (10)
  1. CANAKINUMAB [Suspect]
     Active Substance: CANAKINUMAB
     Indication: Metastatic malignant melanoma
     Dosage: 300 MG, Q4W
     Route: 058
     Dates: start: 20181105
  2. SPARTALIZUMAB [Suspect]
     Active Substance: SPARTALIZUMAB
     Indication: Metastatic malignant melanoma
     Dosage: 400 MG, Q4W
     Route: 042
     Dates: start: 20181105, end: 20181105
  3. LEVOTHYROXINE SODIUM\POTASSIUM IODIDE [Concomitant]
     Active Substance: LEVOTHYROXINE SODIUM\POTASSIUM IODIDE
     Indication: Hypothyroidism
     Dosage: UNK
     Route: 065
     Dates: start: 2006, end: 20181228
  4. ZOPICLONE [Concomitant]
     Active Substance: ZOPICLONE
     Indication: General physical condition
     Dosage: UNK
     Route: 065
     Dates: start: 20181130, end: 20190108
  5. VALSARTAN [Concomitant]
     Active Substance: VALSARTAN
     Indication: Hypertension
     Dosage: UNK
     Route: 065
     Dates: start: 2006, end: 20190108
  6. AMLODIPINE BESYLATE [Concomitant]
     Active Substance: AMLODIPINE BESYLATE
     Indication: Hypertension
     Dosage: UNK
     Route: 065
     Dates: start: 2006, end: 20190108
  7. NEBIVOLOL [Concomitant]
     Active Substance: NEBIVOLOL
     Indication: Hypertension
     Dosage: UNK
     Route: 065
     Dates: start: 2006, end: 20190108
  8. EDOXABAN TOSYLATE [Concomitant]
     Active Substance: EDOXABAN TOSYLATE
     Indication: Arrhythmia
     Dosage: UNK
     Route: 065
     Dates: start: 2016, end: 20190108
  9. CHOLECALCIFEROL [Concomitant]
     Active Substance: CHOLECALCIFEROL
     Indication: General physical condition
     Dosage: 20.000
     Route: 065
     Dates: start: 201809, end: 20190108
  10. POLIHEXANIDE [Concomitant]
     Active Substance: POLIHEXANIDE
     Indication: Wound infection
     Dosage: UNK
     Route: 065
     Dates: start: 20181120, end: 20181125

REACTIONS (1)
  - Gastrooesophageal reflux disease [Not Recovered/Not Resolved]

NARRATIVE: CASE EVENT DATE: 20181130
